FAERS Safety Report 18208354 (Version 2)
Quarter: 2020Q3

REPORT INFORMATION
  Report Type: Spontaneous
  Country: US (occurrence: US)
  Receive Date: 20200828
  Receipt Date: 20200908
  Transmission Date: 20201103
  Serious: Yes (Other)
  Sender: FDA-Public Use
  Company Number: US-GLAXOSMITHKLINE-US2020AMR170066

PATIENT
  Sex: Female

DRUGS (2)
  1. ZEJULA [Suspect]
     Active Substance: NIRAPARIB
     Dosage: 100 MG, QD
     Route: 065
     Dates: start: 20200826
  2. ZEJULA [Suspect]
     Active Substance: NIRAPARIB
     Indication: OVARIAN CANCER
     Dosage: 200 MG, QD (QPM WITH FOOD)
     Route: 065
     Dates: start: 20200816

REACTIONS (9)
  - Constipation [Recovering/Resolving]
  - Vomiting [Recovering/Resolving]
  - Parkinson^s disease [Unknown]
  - Abdominal pain upper [Unknown]
  - Dizziness [Unknown]
  - Confusional state [Unknown]
  - Nausea [Recovering/Resolving]
  - Adverse drug reaction [Recovering/Resolving]
  - Fatigue [Recovering/Resolving]
